FAERS Safety Report 4435161-1 (Version None)
Quarter: 2004Q3

REPORT INFORMATION
  Report Type: 
  Country: None (occurrence: None)
  Receive Date: 20040826
  Receipt Date: 20040813
  Transmission Date: 20050211
  Serious: No
  Sender: FDA-Public Use
  Company Number: 2004UW17233

PATIENT
  Sex: Female

DRUGS (4)
  1. SEROQUEL [Suspect]
     Indication: AFFECTIVE DISORDER
     Dosage: 900 MG DAILY PO
     Route: 048
  2. BACLOFEN [Concomitant]
  3. VISTARIL [Concomitant]
  4. GABITRIL [Concomitant]

REACTIONS (5)
  - DISORIENTATION [None]
  - FALL [None]
  - GAIT DISTURBANCE [None]
  - SOMNOLENCE [None]
  - SUICIDAL IDEATION [None]
